FAERS Safety Report 8804606 (Version 2)
Quarter: 2015Q2

REPORT INFORMATION
  Report Type: Report from Study
  Country: US (occurrence: US)
  Receive Date: 20120924
  Receipt Date: 20150624
  Transmission Date: 20150821
  Serious: Yes (Death)
  Sender: FDA-Public Use
  Company Number: US-ROCHE-1104410

PATIENT
  Age: 59 Year
  Sex: Female

DRUGS (14)
  1. DOCETAXEL. [Concomitant]
     Active Substance: DOCETAXEL
  2. VASOTEC [Concomitant]
     Active Substance: ENALAPRIL MALEATE
  3. EXEMESTANE. [Concomitant]
     Active Substance: EXEMESTANE
  4. AVASTIN [Suspect]
     Active Substance: BEVACIZUMAB
     Indication: BREAST CANCER
     Route: 042
     Dates: start: 20080331, end: 20081003
  5. XELODA [Suspect]
     Active Substance: CAPECITABINE
     Indication: PRODUCT USED FOR UNKNOWN INDICATION
     Route: 065
     Dates: start: 200406
  6. ZOFRAN [Concomitant]
     Active Substance: ONDANSETRON HYDROCHLORIDE
     Route: 042
  7. ZOFRAN [Concomitant]
     Active Substance: ONDANSETRON HYDROCHLORIDE
     Route: 048
  8. CARBOPLATIN. [Concomitant]
     Active Substance: CARBOPLATIN
     Route: 042
  9. AVASTIN [Suspect]
     Active Substance: BEVACIZUMAB
     Indication: METASTASES TO LYMPH NODES
     Route: 042
  10. TAMOXIFEN [Concomitant]
     Active Substance: TAMOXIFEN
  11. GEMZAR [Concomitant]
     Active Substance: GEMCITABINE HYDROCHLORIDE
     Route: 042
  12. BENADRYL [Concomitant]
     Active Substance: DIPHENHYDRAMINE HYDROCHLORIDE
     Route: 042
  13. TAXOL [Concomitant]
     Active Substance: PACLITAXEL
     Route: 042
  14. PLATINOL [Concomitant]
     Active Substance: CISPLATIN

REACTIONS (11)
  - Breast cancer recurrent [Unknown]
  - Drug dose omission [Unknown]
  - Salivary gland mass [Unknown]
  - Off label use [Unknown]
  - Hypoaesthesia [Unknown]
  - Nodule [Unknown]
  - Pain [Unknown]
  - Lymphadenopathy [Unknown]
  - Fatigue [Unknown]
  - Death [Fatal]
  - Nail discolouration [Unknown]

NARRATIVE: CASE EVENT DATE: 20090327
